FAERS Safety Report 25041084 (Version 1)
Quarter: 2025Q1

REPORT INFORMATION
  Report Type: Spontaneous
  Country: TR (occurrence: TR)
  Receive Date: 20250305
  Receipt Date: 20250305
  Transmission Date: 20250409
  Serious: Yes (Hospitalization)
  Sender: MACLEODS
  Company Number: TR-MLMSERVICE-20250219-PI409869-00246-1

PATIENT

DRUGS (7)
  1. OLANZAPINE [Suspect]
     Active Substance: OLANZAPINE
     Indication: Bipolar I disorder
     Route: 065
     Dates: start: 2017
  2. OLANZAPINE [Suspect]
     Active Substance: OLANZAPINE
     Route: 065
     Dates: start: 202007
  3. QUETIAPINE [Suspect]
     Active Substance: QUETIAPINE
     Indication: Bipolar I disorder
     Route: 065
     Dates: start: 2017
  4. VENLAFAXINE [Concomitant]
     Active Substance: VENLAFAXINE HYDROCHLORIDE
     Route: 065
     Dates: start: 2017
  5. VALPROIC ACID [Concomitant]
     Active Substance: VALPROIC ACID
     Route: 065
     Dates: start: 202009
  6. RIVASTIGMINE [Concomitant]
     Active Substance: RIVASTIGMINE
     Indication: Frontotemporal dementia
     Route: 065
     Dates: start: 2020
  7. MEMANTINE [Concomitant]
     Active Substance: MEMANTINE
     Indication: Frontotemporal dementia
     Route: 065
     Dates: start: 2020

REACTIONS (1)
  - Parkinsonism [Unknown]

NARRATIVE: CASE EVENT DATE: 20210101
